FAERS Safety Report 10038648 (Version 1)
Quarter: 2014Q1

REPORT INFORMATION
  Report Type: Report from Study
  Country: US (occurrence: US)
  Receive Date: 20140326
  Receipt Date: 20140326
  Transmission Date: 20141002
  Serious: Yes (Hospitalization, Other)
  Sender: FDA-Public Use
  Company Number: US-ALEXION PHARMACEUTICALS INC.-A201102240

PATIENT
  Sex: Female

DRUGS (1)
  1. SOLIRIS [Suspect]
     Indication: PAROXYSMAL NOCTURNAL HAEMOGLOBINURIA
     Dosage: UNK
     Route: 042

REACTIONS (7)
  - Aplastic anaemia [Unknown]
  - Disease progression [Unknown]
  - Platelet transfusion [Unknown]
  - Transfusion [Unknown]
  - Pyrexia [Unknown]
  - Abdominal pain [Unknown]
  - Nasopharyngitis [Unknown]
